FAERS Safety Report 23638290 (Version 1)
Quarter: 2024Q1

REPORT INFORMATION
  Report Type: Spontaneous
  Country: GB (occurrence: GB)
  Receive Date: 20240315
  Receipt Date: 20240315
  Transmission Date: 20240410
  Serious: Yes (Death)
  Sender: FDA-Public Use
  Company Number: GB-AMGEN-GBRSP2024051586

PATIENT
  Age: 60 Year
  Sex: Female

DRUGS (1)
  1. ARANESP [Suspect]
     Active Substance: DARBEPOETIN ALFA
     Indication: Renal transplant
     Dosage: 60 MICROGRAM, Q4WK (60 MICROGRAM/0.3 ML)
     Route: 058
     Dates: end: 20240126

REACTIONS (1)
  - Death [Fatal]

NARRATIVE: CASE EVENT DATE: 20240126
